FAERS Safety Report 6140125-6 (Version None)
Quarter: 2009Q2

REPORT INFORMATION
  Report Type: 
  Country: None (occurrence: None)
  Receive Date: 20090401
  Receipt Date: 20090330
  Transmission Date: 20091009
  Serious: Yes (Death)
  Sender: FDA-Public Use
  Company Number: US-WYE-H08745709

PATIENT
  Age: 45 Year
  Sex: Male

DRUGS (1)
  1. PRISTIQ [Suspect]
     Dosage: OVERDOSE AMOUNT UNKNOWN

REACTIONS (2)
  - COMPLETED SUICIDE [None]
  - INTENTIONAL OVERDOSE [None]
